FAERS Safety Report 10273225 (Version 1)
Quarter: 2014Q3

REPORT INFORMATION
  Report Type: Spontaneous
  Country: JP (occurrence: JP)
  Receive Date: 20140702
  Receipt Date: 20140702
  Transmission Date: 20150326
  Serious: Yes (Death, Other)
  Sender: FDA-Public Use
  Company Number: PHHY2014JP078343

PATIENT
  Age: 76 Year
  Sex: Female

DRUGS (2)
  1. INFLIXIMAB [Suspect]
     Active Substance: INFLIXIMAB
     Indication: RHEUMATOID ARTHRITIS
  2. METHOTREXATE [Suspect]
     Active Substance: METHOTREXATE
     Indication: RHEUMATOID ARTHRITIS

REACTIONS (9)
  - Tumour ulceration [Recovered/Resolved]
  - Epstein-Barr virus associated lymphoproliferative disorder [Recovered/Resolved]
  - Neoplasm [Recovered/Resolved]
  - Aortic aneurysm rupture [Fatal]
  - Gingival bleeding [Recovered/Resolved]
  - White blood cell count increased [Recovered/Resolved]
  - Anaemia [Recovered/Resolved]
  - Tumour haemorrhage [Recovered/Resolved]
  - Diffuse large B-cell lymphoma [Recovered/Resolved]
